FAERS Safety Report 16309014 (Version 2)
Quarter: 2019Q2

REPORT INFORMATION
  Report Type: Spontaneous
  Country: US (occurrence: US)
  Receive Date: 20190514
  Receipt Date: 20190516
  Transmission Date: 20190711
  Serious: No
  Sender: FDA-Public Use
  Company Number: US-PFIZER INC-2019200359

PATIENT
  Age: 3 Decade
  Sex: Female
  Weight: 81.65 kg

DRUGS (2)
  1. VENLAFAXINE HCL [Suspect]
     Active Substance: VENLAFAXINE HYDROCHLORIDE
     Dosage: 300 MG, DAILY (150MG TWICE DAILY BY MOUTH)
     Route: 048
  2. VENLAFAXINE HCL [Suspect]
     Active Substance: VENLAFAXINE HYDROCHLORIDE
     Dosage: 300 MG, DAILY (150MG TWICE DAILY BY MOUTH)
     Route: 048
     Dates: end: 2011

REACTIONS (3)
  - Feeling abnormal [Unknown]
  - Dysgeusia [Unknown]
  - Drug ineffective [Unknown]
